FAERS Safety Report 7479630-9 (Version None)
Quarter: 2011Q2

REPORT INFORMATION
  Report Type: 
  Country: None (occurrence: None)
  Receive Date: 20110513
  Receipt Date: 20110503
  Transmission Date: 20111010
  Serious: Yes (Other)
  Sender: FDA-Public Use
  Company Number: PHEH2008US06597

PATIENT
  Sex: Female

DRUGS (33)
  1. IBUPROFEN [Concomitant]
     Dosage: 800 MG, UNK
  2. TAMOXIFEN CITRATE [Concomitant]
     Dosage: 10 MG, UNK
  3. EFFEXOR XR [Concomitant]
     Dosage: 37.5 MG, UNK
  4. PENICILLIN VK [Concomitant]
     Dosage: 500 MG, UNK
  5. HERCEPTIN [Concomitant]
  6. ZOMETA [Suspect]
     Indication: OSTEOPOROSIS PROPHYLAXIS
     Dosage: UNK
     Dates: start: 20060101, end: 20060801
  7. OXYCODONE HCL [Concomitant]
     Dosage: 40 MG, UNK
  8. LEVAQUIN [Concomitant]
     Dosage: 500 MG, UNK
  9. PHENERGAN [Concomitant]
     Dosage: 25 MG, UNK
  10. ATIVAN [Concomitant]
  11. VICODIN [Concomitant]
  12. HYDROCODONE BITARTRATE AND ACETAMINOPHEN [Concomitant]
     Dosage: 5-500MG
  13. DIAZEPAM [Concomitant]
     Dosage: 5 MG, UNK
  14. CHLORHEXIDINE [Concomitant]
     Dosage: 0.12 %, UNK
  15. AMOXICILLIN [Concomitant]
     Dosage: 500 MG, UNK
  16. LORAZEPAM [Concomitant]
     Dosage: 1 MG, UNK
  17. NAPROXEN SODIUM [Concomitant]
     Dosage: 550 MG, UNK
  18. CEPHALEXIN [Concomitant]
     Dosage: 500 MG, UNK
  19. AVELOX [Concomitant]
  20. FOSAMAX [Suspect]
     Dosage: UNK
     Dates: start: 20031201, end: 20050901
  21. OXYCODONE HCL [Concomitant]
     Dosage: 10 MG, UNK
  22. CITALOPRAM HYDROBROMIDE [Concomitant]
     Dosage: 20 MG, UNK
  23. NAPROXEN [Concomitant]
     Dosage: 500 MG, UNK
  24. AMBIEN [Concomitant]
     Dosage: 5 MG, UNK
  25. OCUFLOX [Concomitant]
     Dosage: 0.3 %, UNK
  26. OXYCONTIN [Concomitant]
  27. OXYCODONE HCL [Concomitant]
     Dosage: 20 MG, UNK
  28. OXYCODONE AND ACETAMINOPHEN [Concomitant]
     Dosage: 5-325MG
  29. HYDROCODONE BITARTRATE AND ACETAMINOPHEN [Concomitant]
     Dosage: 7.5-750MG
  30. LORAZEPAM [Concomitant]
     Dosage: 0.5 MG, UNK
  31. MEGESTROL ACETATE [Concomitant]
     Dosage: 40 MG, UNK
  32. METHYLPEDNISOLONE SODIUM SUCCINATE [Concomitant]
     Dosage: 4 MG, UNK
  33. CYCLOBENZAPRINE [Concomitant]
     Dosage: 10 MG, UNK

REACTIONS (17)
  - PARAESTHESIA ORAL [None]
  - METASTASES TO LYMPH NODES [None]
  - INTERVERTEBRAL DISC PROTRUSION [None]
  - OSTEONECROSIS OF JAW [None]
  - PAIN [None]
  - EDENTULOUS [None]
  - ATELECTASIS [None]
  - SINUSITIS [None]
  - DRUG ABUSE [None]
  - OSTEOLYSIS [None]
  - DECREASED INTEREST [None]
  - INJURY [None]
  - ANXIETY [None]
  - FORAMEN MAGNUM STENOSIS [None]
  - METASTASES TO BONE [None]
  - METASTASES TO SKIN [None]
  - SPONDYLOLYSIS [None]
